FAERS Safety Report 7042204-8 (Version None)
Quarter: 2010Q3

REPORT INFORMATION
  Report Type: 
  Country: None (occurrence: None)
  Receive Date: 20100929
  Receipt Date: 20100819
  Transmission Date: 20110219
  Serious: No
  Sender: FDA-Public Use
  Company Number: US-WYE-H17007510

PATIENT

DRUGS (3)
  1. PRISTIQ [Suspect]
     Dosage: 50 MG 1X PER 1 DAY, ORAL
     Route: 048
     Dates: start: 20100818
  2. LOVASTATIN [Concomitant]
  3. EXFORGE [Concomitant]

REACTIONS (2)
  - CONDITION AGGRAVATED [None]
  - DYSURIA [None]
